FAERS Safety Report 21113394 (Version 1)
Quarter: 2022Q3

REPORT INFORMATION
  Report Type: Spontaneous
  Country: US (occurrence: None)
  Receive Date: 20220721
  Receipt Date: 20220721
  Transmission Date: 20221027
  Serious: Yes (Death)
  Sender: FDA-Public Use
  Company Number: None

PATIENT
  Age: 76 Year
  Sex: Female
  Weight: 55.35 kg

DRUGS (21)
  1. REVLIMID [Suspect]
     Active Substance: LENALIDOMIDE
     Indication: Plasma cell myeloma
     Dosage: FREQUENCY : DAILY;?
     Route: 048
     Dates: start: 20211117, end: 20220425
  2. ACYCLOVIR [Concomitant]
     Active Substance: ACYCLOVIR
  3. albuterol sulfate 2.5 mg/3 mL (0.083 %) solution for nebulization [Concomitant]
  4. aspirin 81 mg chewable tablet [Concomitant]
  5. atorvastatin 10 mg tablet [Concomitant]
  6. carvedilol 12.5 mg table [Concomitant]
  7. clopidogrel 75 mg tablet [Concomitant]
  8. dexamethasone 20 mg tablet [Concomitant]
  9. duloxetine 60 mg capsule,delayed release [Concomitant]
  10. GABAPENTIN [Concomitant]
     Active Substance: GABAPENTIN
  11. Lomotil 2.5 mg-0.025 mg tablet [Concomitant]
  12. Lyrica 100 mg capsule [Concomitant]
  13. meclizine 12.5 mg tablet [Concomitant]
  14. morphine 30 mg immediate release tablet [Concomitant]
  15. ondansetron 8 mg disintegrating tablet [Concomitant]
  16. Pepcid 20 mg tablet [Concomitant]
  17. ropinirole 0.25 mg tablet [Concomitant]
  18. Symbicort 80 mcg-4.5 mcg/actuation HFA aerosol inhaler [Concomitant]
  19. tizanidine 4 mg tablet [Concomitant]
  20. TRAZODONE [Concomitant]
     Active Substance: TRAZODONE HYDROCHLORIDE
  21. triamcinolone acetonide 0.025 % topical cream [Concomitant]

REACTIONS (1)
  - Death [None]

NARRATIVE: CASE EVENT DATE: 20220628
